FAERS Safety Report 25652598 (Version 1)
Quarter: 2025Q3

REPORT INFORMATION
  Report Type: Report from Study
  Country: US (occurrence: US)
  Receive Date: 20250807
  Receipt Date: 20250807
  Transmission Date: 20251020
  Serious: No
  Sender: SUNOVION
  Company Number: US-SUMITOMO PHARMA SWITZERLAND GMBH-2025SPA009862

PATIENT
  Age: 79 Year
  Sex: Male

DRUGS (20)
  1. ORGOVYX [Suspect]
     Active Substance: RELUGOLIX
     Indication: Prostate cancer
     Route: 048
  2. ORGOVYX [Suspect]
     Active Substance: RELUGOLIX
     Route: 048
  3. ALBUTEROL [Concomitant]
     Active Substance: ALBUTEROL
  4. ALFUZOSIN [Concomitant]
     Active Substance: ALFUZOSIN
  5. FLUTICASONE [Concomitant]
     Active Substance: FLUTICASONE
  6. HYDROCHLOROTHIAZIDE [Concomitant]
     Active Substance: HYDROCHLOROTHIAZIDE
  7. IRON [Concomitant]
     Active Substance: IRON
  8. MAGNESIUM CITRATE [Concomitant]
     Active Substance: MAGNESIUM CITRATE
  9. MONTELUKAST SODIUM [Concomitant]
     Active Substance: MONTELUKAST SODIUM
  10. OMEGA 3 [Concomitant]
     Active Substance: CAPSAICIN
  11. PANTOPRAZOLE [Concomitant]
     Active Substance: PANTOPRAZOLE
  12. PROBIOTICS NOS [Concomitant]
     Active Substance: PROBIOTICS NOS
  13. Multi enzyme [Concomitant]
  14. PSYLLIUM HUSK [Concomitant]
     Active Substance: PSYLLIUM HUSK
  15. QVAR REDIHALER [Concomitant]
     Active Substance: BECLOMETHASONE DIPROPIONATE
  16. TRELEGY ELLIPTA [Concomitant]
     Active Substance: FLUTICASONE FUROATE\UMECLIDINIUM BROMIDE\VILANTEROL TRIFENATATE
  17. VITAMIN C [Concomitant]
     Active Substance: ASCORBIC ACID
  18. VITAMIN D3 [Concomitant]
     Active Substance: CHOLECALCIFEROL
  19. WARFARIN [Concomitant]
     Active Substance: WARFARIN
  20. ZINC [Concomitant]
     Active Substance: ZINC

REACTIONS (2)
  - Pollakiuria [Unknown]
  - Hot flush [Unknown]
